FAERS Safety Report 25803416 (Version 1)
Quarter: 2025Q3

REPORT INFORMATION
  Report Type: Spontaneous
  Country: US (occurrence: None)
  Receive Date: 20250913
  Receipt Date: 20250913
  Transmission Date: 20251020
  Serious: Yes (Hospitalization)
  Sender: FDA-CTU
  Company Number: None

PATIENT
  Sex: Female

DRUGS (7)
  1. OCTAGAM IMMUNE GLOBULIN (HUMAN) [Suspect]
     Active Substance: HUMAN IMMUNOGLOBULIN G
     Indication: Immunodeficiency common variable
     Dosage: OTHER FREQUENCY : EVERY 4 WEEKS;?STRENGTH: 10GM/100ML
     Route: 042
  2. OCTAGAM IMMUNE GLOBULIN (HUMAN) [Suspect]
     Active Substance: HUMAN IMMUNOGLOBULIN G
     Indication: Immunodeficiency common variable
     Dosage: OTHER FREQUENCY : EVERY 4 WEEKS;?STRENGTH: 5GM/50ML
     Route: 042
  3. ACETAMINOPHEN [Concomitant]
     Active Substance: ACETAMINOPHEN
  4. DIPHENHYDRAMINE SDV (1ML/VL) [Concomitant]
  5. SOD CHLOR POS STERILE F (10ML) [Concomitant]
  6. DEXAMETHASONE (1ML/VL) [Concomitant]
  7. HEPARIN L/L FLUSH SYRINGE [Concomitant]

REACTIONS (1)
  - Pancreatitis [None]
